FAERS Safety Report 7769074-4 (Version None)
Quarter: 2011Q3

REPORT INFORMATION
  Report Type: 
  Country: None (occurrence: None)
  Receive Date: 20110922
  Receipt Date: 20110413
  Transmission Date: 20111222
  Serious: Yes (Other)
  Sender: FDA-Public Use
  Company Number: US-ASTRAZENECA-2009UW11298

PATIENT
  Age: 453 Month
  Sex: Male

DRUGS (11)
  1. ANTABUSE [Concomitant]
     Dates: start: 20041114
  2. TRANXENE [Concomitant]
     Dates: start: 20041114
  3. ANTABUSE [Concomitant]
     Dates: start: 20070206
  4. LITHIUM CARBONATE [Concomitant]
     Dosage: 300 MG 2 AM, 1 NOON, 2 HS
     Dates: start: 20070206
  5. SEROQUEL [Suspect]
     Route: 048
     Dates: start: 20041114
  6. PROTONIX [Concomitant]
     Route: 048
     Dates: start: 20041114
  7. COLACE [Concomitant]
     Route: 048
     Dates: start: 20041114
  8. ATIVAN [Concomitant]
     Dates: start: 20070206
  9. SEROQUEL [Suspect]
     Indication: BIPOLAR I DISORDER
     Route: 048
     Dates: start: 20040101
  10. LITHIUM CARBONATE [Concomitant]
     Dates: start: 20041114
  11. ATENOLOL [Concomitant]
     Dates: start: 20041114

REACTIONS (1)
  - PANCREATITIS ACUTE [None]
